FAERS Safety Report 6014491-6 (Version None)
Quarter: 2008Q4

REPORT INFORMATION
  Report Type: 
  Country: None (occurrence: None)
  Receive Date: 20081219
  Receipt Date: 20080825
  Transmission Date: 20090506
  Serious: No
  Sender: FDA-Public Use
  Company Number: A0738423A

PATIENT
  Age: 66 Year
  Sex: Male

DRUGS (4)
  1. AVODART [Suspect]
     Indication: BENIGN PROSTATIC HYPERPLASIA
     Dosage: .5MG PER DAY
     Route: 048
     Dates: start: 20080403
  2. FLOMAX [Concomitant]
  3. TOPROL-XL [Concomitant]
  4. ZOLOFT [Concomitant]

REACTIONS (1)
  - NIPPLE PAIN [None]
